FAERS Safety Report 19856053 (Version 1)
Quarter: 2021Q3

REPORT INFORMATION
  Report Type: Other
  Country: DE (occurrence: DE)
  Receive Date: 20210920
  Receipt Date: 20210920
  Transmission Date: 20211014
  Serious: Yes (Other)
  Sender: FDA-Public Use
  Company Number: DE-MACLEODS PHARMA UK LTD-MAC2021032684

PATIENT

DRUGS (4)
  1. IBUPROFEN 400 [Concomitant]
     Active Substance: IBUPROFEN
     Indication: PRODUCT USED FOR UNKNOWN INDICATION
     Dosage: 400 MILLIGRAM, PRN, 1 {TRIMESTER}, 9. ? 28. GESTATIONAL WEEK
     Route: 064
  2. ESCITALOPRAM [Suspect]
     Active Substance: ESCITALOPRAM OXALATE
     Indication: PRODUCT USED FOR UNKNOWN INDICATION
     Dosage: 10 MILLIGRAM, QD, 1 {TRIMESTER}, 0. ? 40.4. GESTATIONAL WEEK
     Route: 064
     Dates: start: 20200111, end: 20201021
  3. METOPROLOL. [Suspect]
     Active Substance: METOPROLOL
     Indication: PRODUCT USED FOR UNKNOWN INDICATION
     Dosage: 95 MILLIGRAM, QD, 1 {TRIMESTER}, 0. ? 40.4. GESTATIONAL WEEK
     Route: 064
     Dates: start: 20200111, end: 20201021
  4. BUPRENORPHINE. [Suspect]
     Active Substance: BUPRENORPHINE
     Indication: PRODUCT USED FOR UNKNOWN INDICATION
     Dosage: 8 MILLIGRAM, QD, 1 {TRIMESTER}, 0. ? 40.4. GESTATIONAL WEEK
     Route: 064
     Dates: start: 20200111, end: 20201021

REACTIONS (4)
  - Small for dates baby [Unknown]
  - Sepsis neonatal [Recovered/Resolved]
  - Drug withdrawal syndrome neonatal [Recovered/Resolved]
  - Foetal exposure during pregnancy [Unknown]

NARRATIVE: CASE EVENT DATE: 20201021
